FAERS Safety Report 9478447 (Version 2)
Quarter: 2014Q4

REPORT INFORMATION
  Report Type: Report from Study
  Country: US (occurrence: US)
  Receive Date: 20130827
  Receipt Date: 20141021
  Transmission Date: 20150529
  Serious: Yes (Hospitalization)
  Sender: FDA-Public Use
  Company Number: US-ELI_LILLY_AND_COMPANY-US201308005339

PATIENT
  Age: 44 Year
  Sex: Female
  Weight: 68 kg

DRUGS (6)
  1. LEVOTHYROXINE [Concomitant]
     Active Substance: LEVOTHYROXINE
     Dosage: 88 UG, UNKNOWN
     Route: 065
  2. CITALOPRAM [Concomitant]
     Active Substance: CITALOPRAM HYDROBROMIDE
     Dosage: 10 MG, UNKNOWN
     Route: 065
  3. CRESTOR [Concomitant]
     Active Substance: ROSUVASTATIN CALCIUM
     Dosage: 10 MG, UNKNOWN
     Route: 065
  4. OLANZAPINE LONG-ACTING IM [Suspect]
     Active Substance: OLANZAPINE PAMOATE
     Indication: BIPOLAR DISORDER
     Dosage: 150 MG, UNKNOWN
     Route: 030
  5. OLANZAPINE LONG-ACTING IM [Suspect]
     Active Substance: OLANZAPINE PAMOATE
     Dosage: 450 MG, UNKNOWN
     Route: 030
     Dates: start: 20120710
  6. LORAZEPAM. [Concomitant]
     Active Substance: LORAZEPAM
     Dosage: 0.5 MG, UNKNOWN
     Route: 065

REACTIONS (16)
  - Disorientation [Recovered/Resolved]
  - Somnolence [Recovered/Resolved]
  - Irritability [Recovered/Resolved]
  - Loss of consciousness [Recovered/Resolved]
  - Apraxia [Recovered/Resolved]
  - Coma [Recovered/Resolved]
  - Agitation [Recovered/Resolved]
  - Anxiety [Recovered/Resolved]
  - Tachycardia [Recovered/Resolved]
  - Aphasia [Recovered/Resolved]
  - Delirium [Recovered/Resolved]
  - Dizziness [Recovered/Resolved]
  - Sedation [Recovered/Resolved]
  - Dysarthria [Recovered/Resolved]
  - Psychomotor hyperactivity [Recovered/Resolved]
  - Hypertension [Recovered/Resolved]

NARRATIVE: CASE EVENT DATE: 20130813
